FAERS Safety Report 10185936 (Version 1)
Quarter: 2014Q2

REPORT INFORMATION
  Report Type: Report from Study
  Country: BR (occurrence: BR)
  Receive Date: 20140521
  Receipt Date: 20140521
  Transmission Date: 20141212
  Serious: Yes (Other)
  Sender: FDA-Public Use
  Company Number: PHHY2014BR059846

PATIENT
  Sex: Male
  Weight: 100 kg

DRUGS (4)
  1. RITALINA [Suspect]
     Indication: DISTURBANCE IN ATTENTION
     Dosage: 2 DF, DAILY
  2. RITALIN LA [Suspect]
     Indication: DISTURBANCE IN ATTENTION
     Dosage: 1 DF, DAILY
  3. TOPIRAMATE [Concomitant]
     Indication: HEADACHE
     Dosage: 2 DF, BID
  4. TOPIRAMATE [Concomitant]
     Indication: EPISTAXIS

REACTIONS (5)
  - Asperger^s disorder [Unknown]
  - Irritability [Unknown]
  - Apathy [Unknown]
  - Anxiety [Unknown]
  - Drug ineffective [Unknown]
